FAERS Safety Report 9275146 (Version 1)
Quarter: 2013Q2

REPORT INFORMATION
  Report Type: Spontaneous
  Country: US (occurrence: US)
  Receive Date: 20130507
  Receipt Date: 20130507
  Transmission Date: 20140414
  Serious: Yes (Hospitalization, Other)
  Sender: FDA-Public Use
  Company Number: US-CELGENEUS-163-50794-13034864

PATIENT
  Age: 63 Year
  Sex: Female
  Weight: 70.82 kg

DRUGS (11)
  1. VIDAZA [Suspect]
     Indication: MYELODYSPLASTIC SYNDROME
     Route: 050
     Dates: start: 20130311
  2. OXYCONTIN [Concomitant]
     Indication: ARTHRALGIA
     Dosage: 20 MILLIGRAM
     Route: 065
  3. OXYCONTIN [Concomitant]
     Indication: BACK PAIN
  4. OXYCODONE [Concomitant]
     Indication: BACK PAIN
     Dosage: 20 MILLIGRAM
     Route: 065
  5. OXYCODONE [Concomitant]
     Indication: ARTHRALGIA
  6. ANTIEMETIC [Concomitant]
     Indication: NAUSEA
     Route: 065
  7. LAXATIVE [Concomitant]
     Indication: CONSTIPATION
     Route: 065
  8. IRON [Concomitant]
     Indication: PRODUCT USED FOR UNKNOWN INDICATION
     Route: 048
  9. PLATELETS [Concomitant]
     Indication: TRANSFUSION
     Route: 041
     Dates: start: 20130331, end: 20130331
  10. RED BLOOD CELLS [Concomitant]
     Indication: TRANSFUSION
     Route: 041
  11. PREDNISONE [Concomitant]
     Indication: PRODUCT USED FOR UNKNOWN INDICATION
     Dosage: 40
     Route: 065

REACTIONS (10)
  - Acute febrile neutrophilic dermatosis [Not Recovered/Not Resolved]
  - Platelet count increased [Not Recovered/Not Resolved]
  - Platelet count decreased [Not Recovered/Not Resolved]
  - Anaemia [Not Recovered/Not Resolved]
  - Arthralgia [Not Recovered/Not Resolved]
  - Aphagia [Not Recovered/Not Resolved]
  - Skin mass [Not Recovered/Not Resolved]
  - Injection site pain [Not Recovered/Not Resolved]
  - Weight decreased [Not Recovered/Not Resolved]
  - Joint swelling [Not Recovered/Not Resolved]
